FAERS Safety Report 19606153 (Version 1)
Quarter: 2021Q3

REPORT INFORMATION
  Report Type: Spontaneous
  Country: US (occurrence: US)
  Receive Date: 20210724
  Receipt Date: 20210724
  Transmission Date: 20211014
  Serious: No
  Sender: FDA-Public Use
  Company Number: US-ELI_LILLY_AND_COMPANY-US202107009252

PATIENT

DRUGS (1)
  1. OLUMIANT [Suspect]
     Active Substance: BARICITINIB
     Indication: PRODUCT USED FOR UNKNOWN INDICATION
     Dosage: UNK UNK, UNKNOWN
     Route: 065

REACTIONS (1)
  - Pancreatic disorder [Unknown]
